FAERS Safety Report 10184857 (Version 1)
Quarter: 2014Q2

REPORT INFORMATION
  Report Type: Spontaneous
  Country: PR (occurrence: PR)
  Receive Date: 20140521
  Receipt Date: 20140521
  Transmission Date: 20141212
  Serious: No
  Sender: FDA-Public Use
  Company Number: PR-BAYER-2014-074959

PATIENT
  Age: 50 Year
  Sex: Female

DRUGS (2)
  1. ULTRAVIST [Suspect]
     Indication: NECK MASS
     Dosage: 100 ML, ONCE
     Route: 042
     Dates: start: 201405, end: 201405
  2. ULTRAVIST [Suspect]
     Indication: COMPUTERISED TOMOGRAM

REACTIONS (1)
  - Blister [Recovered/Resolved]
